FAERS Safety Report 23845371 (Version 1)
Quarter: 2024Q2

REPORT INFORMATION
  Report Type: Spontaneous
  Country: US (occurrence: US)
  Receive Date: 20240511
  Receipt Date: 20240511
  Transmission Date: 20240716
  Serious: Yes (Other)
  Sender: FDA-Public Use
  Company Number: US-AMGEN-USASP2024091510

PATIENT
  Age: 78 Year
  Sex: Male

DRUGS (1)
  1. CINACALCET HYDROCHLORIDE [Suspect]
     Active Substance: CINACALCET HYDROCHLORIDE
     Indication: Hyperparathyroidism primary
     Dosage: 30 MILLIGRAM, QD
     Route: 065

REACTIONS (7)
  - Thrombocytopenia [Unknown]
  - Acute kidney injury [Unknown]
  - Subdural haematoma [Unknown]
  - Plasma cell myeloma [Unknown]
  - Blood parathyroid hormone increased [Unknown]
  - Anaemia [Unknown]
  - Hypercalcaemia [Unknown]
